FAERS Safety Report 4918407-2 (Version None)
Quarter: 2006Q1

REPORT INFORMATION
  Report Type: 
  Country: None (occurrence: None)
  Receive Date: 20060217
  Receipt Date: 20060217
  Transmission Date: 20060701
  Serious: Yes (Hospitalization)
  Sender: FDA-Public Use
  Company Number: None

PATIENT
  Age: 35 Year
  Sex: Male

DRUGS (4)
  1. ISOVUE-300 [Suspect]
     Indication: SCAN WITH CONTRAST
     Dosage: 130 ML  IV X 1 DOSE
     Route: 042
     Dates: start: 20051208
  2. DIPHENHYDRAMINE [Suspect]
     Indication: PRURITUS
     Dosage: 50 MG  IVP
     Route: 042
     Dates: start: 20051208
  3. DIPHENHYDRAMINE [Suspect]
     Indication: URTICARIA
     Dosage: 50 MG  IVP
     Route: 042
     Dates: start: 20051208
  4. OXYCODONE [Concomitant]

REACTIONS (5)
  - BLOOD PRESSURE DIASTOLIC INCREASED [None]
  - POST PROCEDURAL COMPLICATION [None]
  - PRURITUS [None]
  - SOMNOLENCE [None]
  - URTICARIA [None]
